FAERS Safety Report 7396027 (Version 2)
Quarter: 2013Q4

REPORT INFORMATION
  Report Type: Spontaneous
  Country: US (occurrence: None)
  Receive Date: 20100513
  Receipt Date: 20131003
  Transmission Date: 20140711
  Serious: Yes (Other)
  Sender: FDA-Public Use
  Company Number: 2010S1002665

PATIENT
  Age: 66 Year
  Sex: Female

DRUGS (3)
  1. FLEET PHOSPHO-SODA [Suspect]
     Indication: COLONOSCOPY
     Dosage: 90 ML, 2 IN 24 HOURS, PO
     Route: 048
     Dates: start: 20040628, end: 20040628
  2. ZYRTEC [Concomitant]
  3. ACCUPRIL [Concomitant]

REACTIONS (2)
  - Renal impairment [None]
  - Acute phosphate nephropathy [None]
